FAERS Safety Report 9320501 (Version 1)
Quarter: 2013Q2

REPORT INFORMATION
  Report Type: Spontaneous
  Country: JP (occurrence: JP)
  Receive Date: 20130530
  Receipt Date: 20130530
  Transmission Date: 20140414
  Serious: Yes (Hospitalization)
  Sender: FDA-Public Use
  Company Number: JP-MYLANLABS-2013S1011131

PATIENT
  Age: 66 Year
  Sex: Male

DRUGS (7)
  1. METHYLPREDNISOLONE [Suspect]
     Indication: IMMUNOSUPPRESSION
     Dosage: 1 G/DAY
     Route: 065
  2. CYCLOPHOSPHAMIDE [Suspect]
     Indication: IMMUNOSUPPRESSION
     Dosage: 500 MG/BODY
     Route: 042
  3. CICLOSPORIN [Suspect]
     Indication: IMMUNOSUPPRESSION
     Dosage: 200 MG/BODY
     Route: 065
  4. PREDNISOLONE [Suspect]
     Indication: IMMUNOSUPPRESSION
     Dosage: 70 MG/DAY
     Route: 048
  5. PREDNISOLONE [Suspect]
     Indication: IMMUNOSUPPRESSION
     Dosage: 60 MG/DAY
     Route: 048
  6. PREDNISOLONE [Suspect]
     Indication: IMMUNOSUPPRESSION
     Dosage: 50 MG/DAY
     Route: 048
  7. COTRIMOXAZOLE [Suspect]
     Indication: ANTIBIOTIC PROPHYLAXIS
     Dosage: TRIMETHOPRIM/SULFAMETHOXAZOLE 80MG/400MG
     Route: 065

REACTIONS (4)
  - Pneumonia [Recovered/Resolved]
  - Cytomegalovirus infection [Recovered/Resolved]
  - Nocardiosis [Unknown]
  - Thrombocytopenia [Recovering/Resolving]
